FAERS Safety Report 8244723-5 (Version None)
Quarter: 2012Q1

REPORT INFORMATION
  Report Type: 
  Country: None (occurrence: None)
  Receive Date: 20120329
  Receipt Date: 20110222
  Transmission Date: 20120608
  Serious: No
  Sender: FDA-Public Use
  Company Number: US-MYLANLABS-2011S1003702

PATIENT
  Age: 69 Year
  Sex: Male
  Weight: 68.95 kg

DRUGS (5)
  1. DIAZEPAM [Concomitant]
     Indication: INSOMNIA
  2. FENTANYL-100 [Suspect]
     Indication: CANCER PAIN
     Dosage: CHANGED Q72H
     Route: 062
     Dates: start: 20110120
  3. OXYCODONE HCL [Concomitant]
     Indication: BREAKTHROUGH PAIN
  4. DEXAMETHASONE [Concomitant]
     Indication: NEOPLASM MALIGNANT
     Dosage: 10 PILLS WEEKLY
  5. REVLIMID [Concomitant]
     Indication: NEOPLASM MALIGNANT

REACTIONS (1)
  - MUSCLE SPASMS [None]
